FAERS Safety Report 20494429 (Version 2)
Quarter: 2022Q1

REPORT INFORMATION
  Report Type: Spontaneous
  Country: US (occurrence: US)
  Receive Date: 20220221
  Receipt Date: 20220225
  Transmission Date: 20220423
  Serious: Yes (Death, Hospitalization)
  Sender: FDA-Public Use
  Company Number: US-GW PHARMA-202202USGW00673

PATIENT
  Age: 20 Year
  Sex: Female

DRUGS (1)
  1. EPIDIOLEX [Suspect]
     Active Substance: CANNABIDIOL
     Indication: Lennox-Gastaut syndrome
     Dosage: 300 MILLIGRAM, BID
     Route: 048

REACTIONS (9)
  - COVID-19 pneumonia [Fatal]
  - Pneumonia pseudomonal [Fatal]
  - Pneumonia [Fatal]
  - Respiratory failure [Fatal]
  - Acute respiratory distress syndrome [Fatal]
  - Septic shock [Fatal]
  - Pulmonary oedema [Fatal]
  - Sinus arrhythmia [Unknown]
  - Hypertriglyceridaemia [None]

NARRATIVE: CASE EVENT DATE: 20220101
